FAERS Safety Report 10770443 (Version 1)
Quarter: 2015Q1

REPORT INFORMATION
  Report Type: Spontaneous
  Country: DE (occurrence: DE)
  Receive Date: 20150206
  Receipt Date: 20150206
  Transmission Date: 20150721
  Serious: Yes (Hospitalization)
  Sender: FDA-Public Use
  Company Number: DE-PFIZER INC-2015047793

PATIENT
  Age: 74 Year
  Sex: Female

DRUGS (4)
  1. LYRICA [Suspect]
     Active Substance: PREGABALIN
     Dosage: 75 MG, DAILY
  2. UTROGEST [Concomitant]
     Active Substance: PROGESTERONE
  3. LYRICA [Suspect]
     Active Substance: PREGABALIN
     Indication: ANXIETY DISORDER
     Dosage: 100 MG, DAILY
     Dates: start: 201408
  4. LYRICA [Suspect]
     Active Substance: PREGABALIN
     Dosage: 25 MG, 2X/DAY

REACTIONS (3)
  - Blood pressure increased [Unknown]
  - Influenza like illness [Unknown]
  - Rash [Unknown]

NARRATIVE: CASE EVENT DATE: 201409
